FAERS Safety Report 7115134-0 (Version None)
Quarter: 2010Q4

REPORT INFORMATION
  Report Type: 
  Country: None (occurrence: None)
  Receive Date: 20101116
  Receipt Date: 20101116
  Transmission Date: 20110411
  Serious: No
  Sender: FDA-Public Use
  Company Number: None

PATIENT
  Age: 65 Year
  Sex: Male
  Weight: 88.7 kg

DRUGS (2)
  1. GALANTAMINE HYDROBROMIDE [Suspect]
     Indication: AMNESIA
     Dosage: 16 MG EVERY DAY PO
     Route: 048
     Dates: start: 20091022, end: 20101112
  2. GALANTAMINE HYDROBROMIDE [Suspect]
     Indication: IMMUNISATION
     Dosage: 16 MG EVERY DAY PO
     Route: 048
     Dates: start: 20091022, end: 20101112

REACTIONS (2)
  - NAUSEA [None]
  - NERVOUSNESS [None]
